FAERS Safety Report 4675673-9 (Version None)
Quarter: 2005Q2

REPORT INFORMATION
  Report Type: 
  Country: None (occurrence: None)
  Receive Date: 20050527
  Receipt Date: 20050517
  Transmission Date: 20051028
  Serious: Yes (Other)
  Sender: FDA-Public Use
  Company Number: US-AMGEN-US134080

PATIENT
  Sex: Female

DRUGS (9)
  1. ENBREL [Suspect]
     Indication: RHEUMATOID ARTHRITIS
     Route: 058
     Dates: start: 20021223
  2. LEVOXYL [Concomitant]
  3. ZYRTEC [Concomitant]
  4. ALBUTEROL [Concomitant]
     Route: 055
  5. FOLIC ACID [Concomitant]
  6. IBUPROFEN [Concomitant]
  7. LASIX [Concomitant]
  8. K-DUR 10 [Concomitant]
  9. ADVAIR DISKUS 100/50 [Concomitant]

REACTIONS (3)
  - ASTHMA [None]
  - PLEURISY [None]
  - PNEUMONIA BACTERIAL [None]
